FAERS Safety Report 4628115-3 (Version None)
Quarter: 2005Q2

REPORT INFORMATION
  Report Type: 
  Country: None (occurrence: None)
  Receive Date: 20050406
  Receipt Date: 20050302
  Transmission Date: 20051028
  Serious: Yes (Hospitalization)
  Sender: FDA-Public Use
  Company Number: FR-GLAXOSMITHKLINE-B0374055A

PATIENT
  Age: 85 Year
  Sex: Female

DRUGS (4)
  1. ZINNAT [Suspect]
     Indication: BRONCHITIS
     Dosage: 250MG TWICE PER DAY
     Route: 048
     Dates: start: 20050127, end: 20050202
  2. PREVISCAN [Suspect]
     Indication: PHLEBITIS
     Dosage: 10MG PER DAY
     Route: 048
  3. CLARITYNE [Concomitant]
     Dosage: 10MG PER DAY
     Route: 048
  4. TIMOPTIC [Concomitant]
     Dosage: 1PCT PER DAY
     Route: 047

REACTIONS (6)
  - BLOOD PRESSURE SYSTOLIC INCREASED [None]
  - CREPITATIONS [None]
  - DRUG INTERACTION [None]
  - INTERNATIONAL NORMALISED RATIO INCREASED [None]
  - OXYGEN SATURATION DECREASED [None]
  - RESPIRATORY DISTRESS [None]
